FAERS Safety Report 10027700 (Version 2)
Quarter: 2014Q1

REPORT INFORMATION
  Report Type: Spontaneous
  Country: US (occurrence: US)
  Receive Date: 20140321
  Receipt Date: 20140321
  Transmission Date: 20141002
  Serious: Yes (Disabling)
  Sender: FDA-Public Use
  Company Number: US-GE HEALTHCARE MEDICAL DIAGNOSTICS-OSCN-PR-0901S-0015

PATIENT
  Age: 45 Year
  Sex: Female

DRUGS (7)
  1. OMNISCAN [Suspect]
     Indication: PLASMA CELL MYELOMA
     Dates: start: 20000522, end: 20000522
  2. OMNISCAN [Suspect]
     Indication: PLASMA CELL MYELOMA
     Dates: start: 20010731, end: 20010731
  3. OMNISCAN [Suspect]
     Indication: PLASMA CELL MYELOMA
     Dates: start: 20031110, end: 20031110
  4. OMNISCAN [Suspect]
     Indication: PLASMA CELL MYELOMA
     Dates: start: 20041115, end: 20041115
  5. OMNISCAN [Suspect]
     Indication: PLASMA CELL MYELOMA
     Dates: start: 20050726, end: 20050726
  6. MAGNEVIST [Suspect]
     Indication: PLASMA CELL MYELOMA
     Dates: start: 20010118, end: 20010118
  7. MAGNEVIST [Suspect]
     Indication: CONVULSION

REACTIONS (1)
  - Nephrogenic systemic fibrosis [Not Recovered/Not Resolved]
